FAERS Safety Report 5253937-8 (Version None)
Quarter: 2007Q1

REPORT INFORMATION
  Report Type: 
  Country: None (occurrence: None)
  Receive Date: 20070228
  Receipt Date: 20070228
  Transmission Date: 20070707
  Serious: No
  Sender: FDA-Public Use
  Company Number: None

PATIENT
  Sex: Male
  Weight: 67.6 kg

DRUGS (1)
  1. DEXAMETHASONE [Suspect]
     Dosage: 35 MG

REACTIONS (13)
  - ADRENAL INSUFFICIENCY [None]
  - BLOOD CULTURE POSITIVE [None]
  - DISSEMINATED INTRAVASCULAR COAGULATION [None]
  - HEPATIC VEIN THROMBOSIS [None]
  - HYPERSPLENISM [None]
  - HYPOTENSION [None]
  - NO THERAPEUTIC RESPONSE [None]
  - PANCREATIC NECROSIS [None]
  - PANCREATIC PSEUDOCYST [None]
  - PANCREATITIS [None]
  - SPLENIC VEIN THROMBOSIS [None]
  - SPLENOMEGALY [None]
  - STREPTOCOCCAL INFECTION [None]
